FAERS Safety Report 26082481 (Version 1)
Quarter: 2025Q4

REPORT INFORMATION
  Report Type: Spontaneous
  Country: EU (occurrence: EU)
  Receive Date: 20251124
  Receipt Date: 20251124
  Transmission Date: 20260117
  Serious: Yes (Hospitalization)
  Sender: CHATTEM
  Company Number: EU-OPELLA-2025OHG032963

PATIENT
  Age: 56 Year
  Sex: Female

DRUGS (1)
  1. LEVOCETIRIZINE HYDROCHLORIDE [Suspect]
     Active Substance: LEVOCETIRIZINE HYDROCHLORIDE
     Indication: Urticaria chronic
     Dosage: 3 COMPRIMES PAR JOUR
     Route: 048
     Dates: start: 202307

REACTIONS (2)
  - Loss of consciousness [Recovered/Resolved]
  - Malaise [Recovered/Resolved]
